FAERS Safety Report 20388443 (Version 1)
Quarter: 2022Q1

REPORT INFORMATION
  Report Type: Spontaneous
  Country: US (occurrence: US)
  Receive Date: 20220128
  Receipt Date: 20220128
  Transmission Date: 20220424
  Serious: No
  Sender: FDA-Public Use
  Company Number: US-ENDO PHARMACEUTICALS INC-2021-012805

PATIENT
  Sex: Female

DRUGS (3)
  1. QWO [Suspect]
     Active Substance: COLLAGENASE CLOSTRIDIUM HISTOLYTICUM-AAES
     Indication: Cellulite
     Dosage: UNK UNKNOWN, TREATMENT 1
     Route: 065
     Dates: start: 20210409
  2. QWO [Suspect]
     Active Substance: COLLAGENASE CLOSTRIDIUM HISTOLYTICUM-AAES
     Dosage: UNK UNKNOWN, TREATMENT 2
     Route: 065
     Dates: start: 20210430
  3. QWO [Suspect]
     Active Substance: COLLAGENASE CLOSTRIDIUM HISTOLYTICUM-AAES
     Dosage: UNK UNKNOWN, TREATMENT 3
     Route: 065
     Dates: start: 20210608

REACTIONS (9)
  - Condition aggravated [Not Recovered/Not Resolved]
  - Cellulite [Not Recovered/Not Resolved]
  - Off label use [Unknown]
  - Skin texture abnormal [Unknown]
  - Skin laxity [Unknown]
  - Skin indentation [Not Recovered/Not Resolved]
  - Skin discolouration [Recovering/Resolving]
  - Contusion [Not Recovered/Not Resolved]
  - Drug ineffective [Not Recovered/Not Resolved]

NARRATIVE: CASE EVENT DATE: 20210101
